FAERS Safety Report 15424849 (Version 5)
Quarter: 2018Q4

REPORT INFORMATION
  Report Type: Report from Study
  Country: US (occurrence: US)
  Receive Date: 20180925
  Receipt Date: 20181122
  Transmission Date: 20190204
  Serious: Yes (Death, Hospitalization)
  Sender: FDA-Public Use
  Company Number: US-JNJFOC-20180925036

PATIENT
  Age: 84 Year
  Sex: Male

DRUGS (1)
  1. IMBRUVICA [Suspect]
     Active Substance: IBRUTINIB
     Indication: CHRONIC LYMPHOCYTIC LEUKAEMIA
     Dosage: 420 MG, QD
     Route: 048
     Dates: start: 20180911

REACTIONS (13)
  - Blood count abnormal [Not Recovered/Not Resolved]
  - Prostatic disorder [Unknown]
  - Nausea [Not Recovered/Not Resolved]
  - Haemorrhagic stroke [Fatal]
  - General physical health deterioration [Not Recovered/Not Resolved]
  - Weight decreased [Unknown]
  - Decreased appetite [Unknown]
  - Rash erythematous [Not Recovered/Not Resolved]
  - Hospitalisation [Unknown]
  - Asthenia [Not Recovered/Not Resolved]
  - Rash [Recovering/Resolving]
  - Pleural effusion [Unknown]
  - Hypotension [Unknown]

NARRATIVE: CASE EVENT DATE: 201806
